FAERS Safety Report 6217438-2 (Version None)
Quarter: 2009Q2

REPORT INFORMATION
  Report Type: 
  Country: None (occurrence: None)
  Receive Date: 20090608
  Receipt Date: 20081015
  Transmission Date: 20091009
  Serious: No
  Sender: FDA-Public Use
  Company Number: A0752197A

PATIENT
  Age: 65 Year
  Sex: Female

DRUGS (6)
  1. WELLBUTRIN XL [Suspect]
     Indication: DEPRESSION
     Dosage: 150MG PER DAY
     Route: 048
     Dates: start: 20081006
  2. METFORMIN HYDROCHLORIDE [Concomitant]
  3. JANUVIA [Concomitant]
  4. VYTORIN [Concomitant]
  5. ENALAPRIL [Concomitant]
  6. VESICARE [Concomitant]

REACTIONS (1)
  - DIZZINESS [None]
